FAERS Safety Report 9475310 (Version 1)
Quarter: 2013Q3

REPORT INFORMATION
  Report Type: Spontaneous
  Country: GB (occurrence: None)
  Receive Date: 20130820
  Receipt Date: 20130820
  Transmission Date: 20140515
  Serious: No
  Sender: FDA-Public Use
  Company Number: 2013-3335

PATIENT
  Age: 33 Year
  Sex: Female

DRUGS (5)
  1. AZZALURE (BOTULINUM TOXIN TYPE A) (BOTULINUM TOXIN TYPE A) [Suspect]
     Indication: SKIN WRINKLING
     Dosage: NOT REPORTED (1 IN 1)
     Dates: start: 201111, end: 201111
  2. AMALIAN 1LT ACTIVE (HYALURONIC ACID) [Concomitant]
  3. IBUPROFEN (IBUPROFEN) [Concomitant]
  4. PARACETAMOL (PARACETAMOL) [Concomitant]
  5. AMITRIPTYLINE (AMITRIPTYLINE) [Concomitant]

REACTIONS (4)
  - Injection site pain [None]
  - Visual impairment [None]
  - Headache [None]
  - Muscle spasms [None]
